FAERS Safety Report 18307970 (Version 2)
Quarter: 2020Q4

REPORT INFORMATION
  Report Type: Spontaneous
  Country: US (occurrence: US)
  Receive Date: 20200924
  Receipt Date: 20201021
  Transmission Date: 20210113
  Serious: Yes (Hospitalization)
  Sender: FDA-Public Use
  Company Number: US-TEVA-2020-US-1829811

PATIENT
  Age: 16 Year
  Sex: Female

DRUGS (13)
  1. DEPO-PROVERA [Suspect]
     Active Substance: MEDROXYPROGESTERONE ACETATE
     Indication: UTERINE HAEMORRHAGE
     Dosage: DEPOT MEDROXYPROGESTERONE INJECTION RECEIVING FROM THE AGE OF 10 YEARS
     Route: 065
  2. NORMAL SALINE [Concomitant]
     Active Substance: SODIUM CHLORIDE
     Indication: IRRIGATION THERAPY
     Route: 065
  3. LEVONORGESTREL. [Concomitant]
     Active Substance: LEVONORGESTREL
     Indication: HORMONE THERAPY
     Dosage: INTRAUTERINE DEVICE
     Route: 015
  4. TRIMETHOPRIM/SULFAMETHOXAZOLE [Suspect]
     Active Substance: SULFAMETHOXAZOLE\TRIMETHOPRIM
     Indication: PYOMETRA
     Dosage: FOR 14 DAYS
     Route: 065
  5. LEVOFLOXACIN. [Suspect]
     Active Substance: LEVOFLOXACIN
     Indication: PYOMETRA
     Route: 065
  6. CEFOXITIN [Suspect]
     Active Substance: CEFOXITIN SODIUM
     Indication: PYOMETRA
     Route: 042
  7. GENTAMICIN. [Suspect]
     Active Substance: GENTAMICIN
     Indication: PYOMETRA
     Route: 042
  8. DOXYCYCLINE. [Suspect]
     Active Substance: DOXYCYCLINE
     Dosage: ADMINISTERED 14 DAYS AFTER THE DISCHARGED FROM HOSPITAL
     Route: 048
  9. CLINDAMYCIN. [Suspect]
     Active Substance: CLINDAMYCIN
     Indication: PYOMETRA
     Route: 065
  10. DOXYCYCLINE. [Suspect]
     Active Substance: DOXYCYCLINE
     Indication: PYOMETRA
     Dosage: ADMINISTERED 24 HOURS DURING HOSPITALISATION
     Route: 048
  11. CEFTRIAXONE. [Suspect]
     Active Substance: CEFTRIAXONE
     Indication: PYOMETRA
     Route: 042
  12. VANCOMYCIN [Suspect]
     Active Substance: VANCOMYCIN
     Indication: PYOMETRA
     Route: 065
  13. CEFDINIR. [Suspect]
     Active Substance: CEFDINIR
     Indication: PYOMETRA
     Dosage: FOR 10 DAYS
     Route: 065

REACTIONS (2)
  - Pyometra [Recovered/Resolved]
  - Treatment failure [Unknown]
